FAERS Safety Report 7903144-2 (Version None)
Quarter: 2011Q4

REPORT INFORMATION
  Report Type: 
  Country: None (occurrence: None)
  Receive Date: 20111109
  Receipt Date: 20111105
  Transmission Date: 20120403
  Serious: Yes (Hospitalization)
  Sender: FDA-Public Use
  Company Number: BR-BRISTOL-MYERS SQUIBB COMPANY-16076374

PATIENT
  Age: 64 Year
  Sex: Male

DRUGS (7)
  1. SOLU-MEDROL [Concomitant]
     Dates: start: 20110917, end: 20110926
  2. ROCEPHIN [Concomitant]
     Dates: start: 20110917, end: 20110926
  3. MEROPENEM [Concomitant]
     Dates: start: 20111008, end: 20111018
  4. MORPHINE [Concomitant]
  5. FLAGYL [Concomitant]
     Dates: start: 20110917, end: 20110926
  6. TARGOCID [Concomitant]
     Dates: start: 20111008, end: 20111018
  7. IPILIMUMAB [Suspect]
     Indication: MALIGNANT MELANOMA
     Dosage: 13JUL-13JUL11,03AUG-03AUG11,24AUG-24AUG11
     Route: 042
     Dates: start: 20110713, end: 20110824

REACTIONS (6)
  - ABDOMINAL PAIN [None]
  - HYPOTENSION [None]
  - DEPRESSED LEVEL OF CONSCIOUSNESS [None]
  - HEPATITIS [None]
  - COLITIS [None]
  - DIARRHOEA [None]
